FAERS Safety Report 17170539 (Version 1)
Quarter: 2019Q4

REPORT INFORMATION
  Report Type: Spontaneous
  Country: US (occurrence: US)
  Receive Date: 20191218
  Receipt Date: 20191218
  Transmission Date: 20200122
  Serious: Yes (Hospitalization, Other)
  Sender: FDA-Public Use
  Company Number: US-HIKMA PHARMACEUTICALS USA INC.-US-H14001-19-06120

PATIENT
  Age: 73 Year
  Sex: Male
  Weight: 89 kg

DRUGS (3)
  1. CABAZITAXEL [Concomitant]
     Active Substance: CABAZITAXEL
     Indication: HORMONE-REFRACTORY PROSTATE CANCER
     Route: 042
     Dates: start: 20180213, end: 20180912
  2. PREDNISONE. [Suspect]
     Active Substance: PREDNISONE
     Indication: PRODUCT USED FOR UNKNOWN INDICATION
     Route: 048
     Dates: start: 20180213, end: 20181007
  3. ENZALUTAMIDE [Concomitant]
     Active Substance: ENZALUTAMIDE
     Indication: HORMONE-REFRACTORY PROSTATE CANCER
     Route: 048
     Dates: start: 20180213

REACTIONS (2)
  - Asthenia [Unknown]
  - Haematuria [Recovering/Resolving]

NARRATIVE: CASE EVENT DATE: 20191030
